FAERS Safety Report 10029919 (Version 2)
Quarter: 2014Q1

REPORT INFORMATION
  Report Type: Spontaneous
  Country: US (occurrence: US)
  Receive Date: 20140323
  Receipt Date: 20140323
  Transmission Date: 20141002
  Serious: Yes (Disabling)
  Sender: FDA-Public Use
  Company Number: US-GE HEALTHCARE MEDICAL DIAGNOSTICS-OSCN-PR-0806S-0388

PATIENT
  Age: 63 Year
  Sex: Male

DRUGS (15)
  1. OMNISCAN [Suspect]
     Indication: INTERMITTENT CLAUDICATION
     Route: 042
     Dates: start: 20040428, end: 20040428
  2. OMNISCAN [Suspect]
     Indication: RENAL TRANSPLANT
     Route: 042
     Dates: start: 20060610, end: 20060610
  3. OMNISCAN [Suspect]
     Route: 042
     Dates: start: 20060617, end: 20060617
  4. GADOLINIUM (UNSPECIFIED) [Suspect]
     Indication: INTRA-ABDOMINAL HAEMORRHAGE
     Dates: start: 20041129, end: 20041129
  5. GADOLINIUM (UNSPECIFIED) [Suspect]
     Indication: ABSCESS
  6. MAGNEVIST [Suspect]
     Indication: INFERIOR VENA CAVAL OCCLUSION
     Route: 042
     Dates: start: 20041129, end: 20041129
  7. MAGNEVIST [Suspect]
     Indication: SKIN ULCER
     Route: 042
     Dates: start: 20060315, end: 20060315
  8. MAGNEVIST [Suspect]
     Route: 042
     Dates: start: 20060730, end: 20060730
  9. PREDNISONE [Concomitant]
     Indication: PRODUCT USED FOR UNKNOWN INDICATION
     Dates: start: 2000, end: 2008
  10. NORVASC [Concomitant]
     Indication: PRODUCT USED FOR UNKNOWN INDICATION
     Dates: start: 2004
  11. NEORAL [Concomitant]
     Indication: PRODUCT USED FOR UNKNOWN INDICATION
     Dates: start: 1995, end: 2006
  12. EPOGEN [Concomitant]
     Indication: PRODUCT USED FOR UNKNOWN INDICATION
     Dates: start: 2004, end: 2008
  13. RAPAMUNE [Concomitant]
     Indication: PRODUCT USED FOR UNKNOWN INDICATION
     Dates: start: 2005, end: 2008
  14. CELLCEPT [Concomitant]
     Indication: PRODUCT USED FOR UNKNOWN INDICATION
     Dates: start: 2005, end: 2007
  15. PROGRAF [Concomitant]
     Indication: PRODUCT USED FOR UNKNOWN INDICATION
     Dates: start: 2006, end: 2008

REACTIONS (1)
  - Nephrogenic systemic fibrosis [Not Recovered/Not Resolved]
